FAERS Safety Report 12950111 (Version 1)
Quarter: 2016Q4

REPORT INFORMATION
  Report Type: Spontaneous
  Country: US (occurrence: US)
  Receive Date: 20161117
  Receipt Date: 20161117
  Transmission Date: 20170207
  Serious: Yes (Hospitalization)
  Sender: FDA-Public Use
  Company Number: None

PATIENT
  Age: 65 Year
  Sex: Female

DRUGS (5)
  1. KCL [Concomitant]
     Active Substance: POTASSIUM CHLORIDE
  2. FOLIC ACID. [Concomitant]
     Active Substance: FOLIC ACID
  3. SIMVASTATIN. [Concomitant]
     Active Substance: SIMVASTATIN
  4. JADENU [Suspect]
     Active Substance: DEFERASIROX
     Route: 048
     Dates: start: 20161007
  5. METFORMIN [Concomitant]
     Active Substance: METFORMIN HYDROCHLORIDE

REACTIONS (2)
  - Hospitalisation [None]
  - Drug dose omission [None]

NARRATIVE: CASE EVENT DATE: 20161111
